FAERS Safety Report 13888193 (Version 1)
Quarter: 2017Q3

REPORT INFORMATION
  Report Type: Spontaneous
  Country: US (occurrence: US)
  Receive Date: 20170821
  Receipt Date: 20170821
  Transmission Date: 20171127
  Serious: No
  Sender: FDA-Public Use
  Company Number: US-BAYER-2017-157184

PATIENT
  Sex: Female

DRUGS (1)
  1. CLARITIN [Suspect]
     Active Substance: LORATADINE
     Indication: RASH
     Dosage: UNK
     Route: 065
     Dates: start: 20170816

REACTIONS (2)
  - Product use in unapproved indication [Unknown]
  - Product quality issue [None]

NARRATIVE: CASE EVENT DATE: 20170816
